FAERS Safety Report 19255733 (Version 1)
Quarter: 2021Q2

REPORT INFORMATION
  Report Type: Spontaneous
  Country: US (occurrence: US)
  Receive Date: 20210513
  Receipt Date: 20210513
  Transmission Date: 20210717
  Serious: No
  Sender: FDA-Public Use
  Company Number: US-009507513-2105USA002533

PATIENT
  Sex: Female

DRUGS (3)
  1. LENVATINIB MESYLATE [Suspect]
     Active Substance: LENVATINIB MESYLATE
     Indication: ENDOMETRIAL CANCER
     Dosage: 14 MILLIGRAM, QD
     Dates: start: 20210331, end: 20210424
  2. KEYTRUDA [Suspect]
     Active Substance: PEMBROLIZUMAB
     Indication: ENDOMETRIAL CANCER
  3. LENVATINIB MESYLATE [Suspect]
     Active Substance: LENVATINIB MESYLATE
     Dosage: 10 MILLIGRAM, QD
     Dates: start: 20210429

REACTIONS (3)
  - Headache [Unknown]
  - Cold-stimulus headache [Unknown]
  - Hypermetropia [Unknown]

NARRATIVE: CASE EVENT DATE: 2021
